FAERS Safety Report 7812383-0 (Version None)
Quarter: 2011Q4

REPORT INFORMATION
  Report Type: 
  Country: None (occurrence: None)
  Receive Date: 20111013
  Receipt Date: 20111011
  Transmission Date: 20120403
  Serious: Yes (Other)
  Sender: FDA-Public Use
  Company Number: DE-GLAXOSMITHKLINE-D0072995A

PATIENT
  Sex: Male

DRUGS (3)
  1. TROBALT [Suspect]
     Dosage: 50MG AT NIGHT
     Route: 048
     Dates: start: 20110101
  2. NEURONTIN [Concomitant]
     Route: 048
  3. VIMPAT [Concomitant]

REACTIONS (4)
  - WEIGHT INCREASED [None]
  - CONVULSION [None]
  - CARDIAC ARREST [None]
  - FATIGUE [None]
